FAERS Safety Report 13545642 (Version 3)
Quarter: 2017Q3

REPORT INFORMATION
  Report Type: Spontaneous
  Country: US (occurrence: US)
  Receive Date: 20170515
  Receipt Date: 20170809
  Transmission Date: 20171127
  Serious: Yes (Hospitalization)
  Sender: FDA-Public Use
  Company Number: US-PFIZER INC-2017211649

PATIENT
  Age: 6 Year
  Sex: Male

DRUGS (4)
  1. TOPOTECAN HYDROCHLORIDE. [Suspect]
     Active Substance: TOPOTECAN HYDROCHLORIDE
     Indication: METASTASES TO BONE
     Dosage: 12 MG/M2, CYCLIC
     Dates: start: 20161104, end: 20161108
  2. TOPOTECAN HYDROCHLORIDE. [Suspect]
     Active Substance: TOPOTECAN HYDROCHLORIDE
     Dosage: 12 MG/M2, CYCLIC
     Dates: start: 20161206, end: 20161210
  3. CYCLOPHOSPHAMIDE. [Suspect]
     Active Substance: CYCLOPHOSPHAMIDE
     Indication: METASTASES TO BONE
     Dosage: 4 G/M2, CYCLIC
     Dates: start: 20161104, end: 20161108
  4. CYCLOPHOSPHAMIDE. [Suspect]
     Active Substance: CYCLOPHOSPHAMIDE
     Dosage: 4 G/M2, CYCLIC
     Dates: start: 20161206, end: 20161210

REACTIONS (3)
  - Product use issue [Unknown]
  - Neoplasm progression [Unknown]
  - Pyrexia [Unknown]
